FAERS Safety Report 8453739 (Version 2)
Quarter: 2015Q1

REPORT INFORMATION
  Report Type: Report from Study
  Country: US (occurrence: US)
  Receive Date: 20120312
  Receipt Date: 20150314
  Transmission Date: 20150721
  Serious: Yes (Death, Life-Threatening)
  Sender: FDA-Public Use
  Company Number: US-ROCHE-1047315

PATIENT
  Sex: Male
  Weight: 114.41 kg

DRUGS (28)
  1. OXALIPLATIN. [Concomitant]
     Active Substance: OXALIPLATIN
     Route: 042
  2. HYDROCHLOROTHIAZIDE. [Concomitant]
     Active Substance: HYDROCHLOROTHIAZIDE
     Route: 048
  3. LEVOTHYROXINE [Concomitant]
     Active Substance: LEVOTHYROXINE
     Route: 048
  4. GEMZAR [Concomitant]
     Active Substance: GEMCITABINE HYDROCHLORIDE
     Route: 042
  5. DECADRON [Concomitant]
     Active Substance: DEXAMETHASONE
     Route: 042
  6. MILK THISTLE [Concomitant]
     Active Substance: MILK THISTLE
     Route: 048
  7. FLEXERIL [Concomitant]
     Active Substance: CYCLOBENZAPRINE HYDROCHLORIDE
     Route: 065
  8. BENADRYL [Concomitant]
     Active Substance: DIPHENHYDRAMINE HYDROCHLORIDE
     Route: 042
  9. FELODIPINE. [Concomitant]
     Active Substance: FELODIPINE
     Route: 048
  10. AMANTADINE [Concomitant]
     Active Substance: AMANTADINE
     Route: 048
  11. PROMETHAZINE [Concomitant]
     Active Substance: PROMETHAZINE\PROMETHAZINE HYDROCHLORIDE
     Indication: NAUSEA
     Route: 048
  12. TRAMADOL [Concomitant]
     Active Substance: TRAMADOL
     Indication: PAIN
     Route: 048
  13. TORSEMIDE. [Concomitant]
     Active Substance: TORSEMIDE
  14. AVASTIN [Suspect]
     Active Substance: BEVACIZUMAB
     Indication: PANCREATIC CARCINOMA
     Dosage: 02/DEC/2010, 16/DEC/2010, 30/DEC/2010, 13/JAN/2011, 27/JAN/2011, 24/FEB/2011
     Route: 042
  15. MAGNESIUM SULFATE. [Concomitant]
     Active Substance: MAGNESIUM SULFATE
     Route: 042
  16. ALLOPURINOL. [Concomitant]
     Active Substance: ALLOPURINOL
     Route: 048
  17. ZOLPIDEM [Concomitant]
     Active Substance: ZOLPIDEM\ZOLPIDEM TARTRATE
     Route: 048
  18. LORTAB (UNITED STATES) [Concomitant]
     Dosage: 7.5 -500 MG
     Route: 048
  19. AVASTIN [Suspect]
     Active Substance: BEVACIZUMAB
     Indication: HEPATIC CANCER
     Dosage: 18/NOV/2010
     Route: 042
  20. ACETAMINOPHEN. [Concomitant]
     Active Substance: ACETAMINOPHEN
     Route: 048
  21. LOPERAMIDE [Concomitant]
     Active Substance: LOPERAMIDE
     Route: 048
  22. VITAMIN B12 [Concomitant]
     Active Substance: CYANOCOBALAMIN
     Dosage: 110-0.5 MG
     Route: 048
  23. ALOXI [Concomitant]
     Active Substance: PALONOSETRON HYDROCHLORIDE
     Route: 042
  24. CALCIUM GLUCONATE. [Concomitant]
     Active Substance: CALCIUM GLUCONATE
     Route: 042
  25. ZOFRAN [Concomitant]
     Active Substance: ONDANSETRON HYDROCHLORIDE
     Indication: NAUSEA
     Route: 048
  26. DOXYCYCLINE. [Concomitant]
     Active Substance: DOXYCYCLINE
  27. CHONDROITIN [Concomitant]
     Active Substance: CHONDROITIN
     Dosage: 400-500 MG
     Route: 048
  28. MECLIZINE [Concomitant]
     Active Substance: MECLIZINE\MECLIZINE HYDROCHLORIDE
     Route: 048

REACTIONS (13)
  - Hypoaesthesia [Unknown]
  - Flatulence [Unknown]
  - Dry skin [Unknown]
  - Swelling [Recovered/Resolved]
  - Death [Fatal]
  - Asthenia [Unknown]
  - Muscle strain [Unknown]
  - Upper respiratory tract infection [Unknown]
  - Fatigue [Unknown]
  - Weight increased [Unknown]
  - Chills [Unknown]
  - Back pain [Unknown]
  - Body temperature increased [Unknown]
